FAERS Safety Report 8437742-7 (Version None)
Quarter: 2012Q2

REPORT INFORMATION
  Report Type: 
  Country: None (occurrence: None)
  Receive Date: 20120614
  Receipt Date: 20120413
  Transmission Date: 20120825
  Serious: No
  Sender: FDA-Public Use
  Company Number: US-GLAXOSMITHKLINE-A0973557A

PATIENT
  Age: 33 Year
  Sex: Male

DRUGS (1)
  1. NICORETTE (MINT) [Suspect]
     Indication: EX-TOBACCO USER
     Dates: start: 20120409, end: 20120411

REACTIONS (5)
  - DIZZINESS [None]
  - TREMOR [None]
  - COLD SWEAT [None]
  - HYPERHIDROSIS [None]
  - VISION BLURRED [None]
